FAERS Safety Report 5044844-4 (Version None)
Quarter: 2006Q2

REPORT INFORMATION
  Report Type: 
  Country: None (occurrence: None)
  Receive Date: 20060601
  Receipt Date: 20060329
  Transmission Date: 20061013
  Serious: No
  Sender: FDA-Public Use
  Company Number: 2006-BP-02654BP

PATIENT
  Sex: Female

DRUGS (13)
  1. SPIRIVA [Suspect]
     Indication: CHRONIC OBSTRUCTIVE PULMONARY DISEASE
     Dosage: 18 MCG (18 MCG,1 IN 1 D),IH
     Dates: start: 20050601
  2. SPIRIVA [Suspect]
  3. ALBUTEROL [Concomitant]
  4. IPRATROPIUM BROMIDE [Concomitant]
  5. COMBIVENT (COMBIVENT /01261001/) [Concomitant]
  6. OXYGEN (OXYGEN) [Concomitant]
  7. PREDNISONE TAB [Concomitant]
  8. K-DUR 10 [Concomitant]
  9. LASIX [Concomitant]
  10. SYNTHROID [Concomitant]
  11. NORVASC [Concomitant]
  12. XANAX [Concomitant]
  13. ZESTORETIC (PRINZIDE /00977901/) [Concomitant]

REACTIONS (1)
  - DRUG INEFFECTIVE [None]
